FAERS Safety Report 9064580 (Version 1)
Quarter: 2013Q1

REPORT INFORMATION
  Report Type: Spontaneous
  Country: US (occurrence: US)
  Receive Date: 20130214
  Receipt Date: 20130214
  Transmission Date: 20140127
  Serious: Yes (Other)
  Sender: FDA-Public Use
  Company Number: US-BIOGENIDEC-2013BI014606

PATIENT
  Age: 63 Year
  Sex: Female

DRUGS (7)
  1. AVONEX [Suspect]
     Indication: MULTIPLE SCLEROSIS
     Route: 030
     Dates: start: 20031006, end: 20041011
  2. AVONEX [Suspect]
     Indication: MULTIPLE SCLEROSIS
     Route: 030
     Dates: start: 20050601
  3. CLONAZEPAM [Concomitant]
     Indication: ANXIETY
  4. CYMBALTA [Concomitant]
     Indication: DEPRESSION
  5. FIORICET [Concomitant]
     Indication: MIGRAINE
  6. SYNTHROID [Concomitant]
     Indication: HYPERTHYROIDISM
  7. COREG [Concomitant]
     Indication: HYPERTENSION
     Dates: start: 201208

REACTIONS (12)
  - Coronary artery occlusion [Unknown]
  - Nuclear magnetic resonance imaging abnormal [Unknown]
  - Dysphagia [Recovered/Resolved]
  - Dehydration [Recovered/Resolved]
  - Weight decreased [Recovered/Resolved]
  - Local swelling [Not Recovered/Not Resolved]
  - Joint swelling [Not Recovered/Not Resolved]
  - Oesophageal disorder [Recovered/Resolved]
  - Influenza like illness [Recovered/Resolved]
  - Chest pain [Recovered/Resolved]
  - Vomiting [Recovered/Resolved]
  - Alopecia [Not Recovered/Not Resolved]
